FAERS Safety Report 20937479 (Version 1)
Quarter: 2022Q2

REPORT INFORMATION
  Report Type: Spontaneous
  Country: US (occurrence: None)
  Receive Date: 20220608
  Receipt Date: 20220608
  Transmission Date: 20220721
  Serious: Yes (Hospitalization)
  Sender: FDA-Public Use
  Company Number: None

PATIENT
  Age: 33 Year
  Sex: Female

DRUGS (4)
  1. PULMOZYME [Suspect]
     Active Substance: DORNASE ALFA
     Indication: Cystic fibrosis
     Dosage: 2.5MG/2.5ML?INHALE 2.5 MLS (2.5 MG TOTAL) BY MOUTH VIA NEBULIZER EVERY DAY-KEEP REFRIGERATED. PROTEC
     Route: 055
     Dates: start: 20220409
  2. AQUADEKS CAP [Concomitant]
  3. NAPROXEN TAB [Concomitant]
  4. TOBRAMYCIN [Concomitant]
     Active Substance: TOBRAMYCIN

REACTIONS (1)
  - Pseudomonas infection [None]

NARRATIVE: CASE EVENT DATE: 20220525
